FAERS Safety Report 7621954-6 (Version None)
Quarter: 2011Q3

REPORT INFORMATION
  Report Type: 
  Country: None (occurrence: None)
  Receive Date: 20110720
  Receipt Date: 20101111
  Transmission Date: 20111222
  Serious: No
  Sender: FDA-Public Use
  Company Number: US-BAYER-2010-003750

PATIENT
  Age: 69 Year
  Sex: Female
  Weight: 73 kg

DRUGS (8)
  1. ATENOLOL [Concomitant]
  2. LISINOPRIL [Concomitant]
  3. ASPIRIN [Suspect]
  4. AMLODIPINE [Concomitant]
  5. CALCITRIOL [Concomitant]
  6. HYDROCHLOROTHIAZIDE [Concomitant]
  7. ALENDRONATE SODIUM [Concomitant]
  8. FENOFIBRATE [Concomitant]

REACTIONS (1)
  - NAUSEA [None]
